FAERS Safety Report 8886433 (Version 2)
Quarter: 2012Q4

REPORT INFORMATION
  Report Type: 
  Country: US (occurrence: US)
  Receive Date: 20121105
  Receipt Date: 20121126
  Transmission Date: 20130627
  Serious: Yes (Other)
  Sender: FDA-Public Use
  Company Number: US-ROXANE LABORATORIES, INC.-2012-RO-02334RO

PATIENT
  Sex: Female

DRUGS (1)
  1. METHADONE [Suspect]

REACTIONS (10)
  - Overdose [Unknown]
  - Fall [Unknown]
  - Malaise [Unknown]
  - Kidney infection [Unknown]
  - Blood glucose increased [Unknown]
  - Weight increased [Unknown]
  - Neuralgia [Unknown]
  - Diabetic neuropathy [Unknown]
  - Oedema peripheral [Unknown]
  - Drug withdrawal syndrome [Unknown]
